FAERS Safety Report 7831995-1 (Version None)
Quarter: 2011Q4

REPORT INFORMATION
  Report Type: 
  Country: None (occurrence: None)
  Receive Date: 20111021
  Receipt Date: 20111006
  Transmission Date: 20120403
  Serious: Yes (Other)
  Sender: FDA-Public Use
  Company Number: US-ROCHE-1003252

PATIENT
  Age: 57 Year
  Sex: Female

DRUGS (2)
  1. XOLAIR [Suspect]
     Indication: ASTHMA
     Dosage: DOSE: 300 IU/ML
  2. XOLAIR [Suspect]
     Indication: SINUSITIS

REACTIONS (2)
  - DYSPNOEA [None]
  - TRACHEOMALACIA [None]
